FAERS Safety Report 8993437 (Version 3)
Quarter: 2013Q3

REPORT INFORMATION
  Report Type: Report from Study
  Country: US (occurrence: US)
  Receive Date: 20130102
  Receipt Date: 20130719
  Transmission Date: 20140515
  Serious: Yes (Death, Life-Threatening, Hospitalization)
  Sender: FDA-Public Use
  Company Number: US-EISAI INC-E7389-03409-CLI-US

PATIENT
  Age: 45 Year
  Sex: Female
  Weight: 115 kg

DRUGS (16)
  1. HALAVEN [Suspect]
     Indication: BREAST CANCER
     Route: 041
     Dates: start: 20121115, end: 20121121
  2. RAMUCIRUMAB [Suspect]
     Indication: BREAST CANCER
     Route: 041
     Dates: start: 20121115, end: 20121115
  3. ALLOPURINOL [Concomitant]
  4. ANZEMET [Concomitant]
  5. DIFLUCAN [Concomitant]
  6. DILAUDID [Concomitant]
  7. EFFEXOR [Concomitant]
  8. GRANISETRON HCL [Concomitant]
  9. IBUPROFEN [Concomitant]
  10. LEVAQUIN [Concomitant]
  11. LORAZEPAM [Concomitant]
  12. MARINOL [Concomitant]
  13. METANX [Concomitant]
  14. METHADONE [Concomitant]
  15. PROCHLORPERAZINE [Concomitant]
  16. RESTORIL [Concomitant]

REACTIONS (6)
  - Septic shock [Fatal]
  - Cardiac arrest [Recovered/Resolved with Sequelae]
  - Renal failure [Unknown]
  - Respiratory failure [Unknown]
  - Neutropenia [Unknown]
  - Dyspnoea [Unknown]
